FAERS Safety Report 6262674-2 (Version None)
Quarter: 2009Q3

REPORT INFORMATION
  Report Type: 
  Country: None (occurrence: None)
  Receive Date: 20090709
  Receipt Date: 20090701
  Transmission Date: 20100115
  Serious: Yes (Death)
  Sender: FDA-Public Use
  Company Number: TW-BAXTER-2009BH011067

PATIENT
  Age: 60 Year
  Sex: Female

DRUGS (5)
  1. DIANEAL [Suspect]
     Indication: PERITONEAL DIALYSIS
     Route: 033
     Dates: start: 20090601
  2. DIANEAL [Suspect]
     Route: 033
     Dates: start: 20090601
  3. DIANEAL [Suspect]
     Route: 033
     Dates: start: 20090501, end: 20090601
  4. EXTRANEAL [Suspect]
     Indication: PERITONEAL DIALYSIS
     Route: 033
     Dates: start: 20090601
  5. EXTRANEAL [Suspect]
     Route: 033
     Dates: start: 20090501, end: 20090601

REACTIONS (1)
  - DEATH [None]
